FAERS Safety Report 6986183-8 (Version None)
Quarter: 2010Q3

REPORT INFORMATION
  Report Type: 
  Country: None (occurrence: None)
  Receive Date: 20100915
  Receipt Date: 20090721
  Transmission Date: 20110219
  Serious: No
  Sender: FDA-Public Use
  Company Number: US-WYE-H09627809

PATIENT
  Age: 43 Year
  Sex: Female
  Weight: 72.64 kg

DRUGS (2)
  1. PRISTIQ [Suspect]
     Indication: DEPRESSION
     Route: 048
     Dates: start: 20090401
  2. IBUPROFEN [Suspect]
     Indication: HEADACHE
     Dosage: UNKNOWN
     Dates: end: 20090401

REACTIONS (1)
  - UTERINE HAEMORRHAGE [None]
